FAERS Safety Report 24711241 (Version 1)
Quarter: 2024Q4

REPORT INFORMATION
  Report Type: Spontaneous
  Country: CA (occurrence: CA)
  Receive Date: 20241209
  Receipt Date: 20241209
  Transmission Date: 20250115
  Serious: Yes (Hospitalization, Other)
  Sender: PFIZER
  Company Number: CA-PFIZER INC-202400316727

PATIENT
  Age: 77 Year
  Sex: Female
  Weight: 85 kg

DRUGS (2)
  1. CARBOPLATIN [Suspect]
     Active Substance: CARBOPLATIN
     Indication: Ovarian cancer
     Dosage: SINGLE
     Route: 042
  2. PACLITAXEL [Suspect]
     Active Substance: PACLITAXEL
     Indication: Ovarian cancer
     Dosage: SINGLE
     Route: 042

REACTIONS (2)
  - Toxic cardiomyopathy [Recovering/Resolving]
  - Ejection fraction decreased [Recovering/Resolving]
